FAERS Safety Report 20089593 (Version 1)
Quarter: 2021Q4

REPORT INFORMATION
  Report Type: Other
  Country: ES (occurrence: ES)
  Receive Date: 20211119
  Receipt Date: 20211119
  Transmission Date: 20220303
  Serious: Yes (Life-Threatening, Hospitalization, Other)
  Sender: FDA-Public Use
  Company Number: None

PATIENT
  Age: 62 Year
  Sex: Male

DRUGS (7)
  1. TACROLIMUS [Interacting]
     Active Substance: TACROLIMUS
     Indication: Lung transplant
     Dosage: UNK UNK, UNKNOWN FREQ.
     Route: 048
     Dates: start: 20210821
  2. ISAVUCONAZOLE [Interacting]
     Active Substance: ISAVUCONAZOLE
     Indication: Brain abscess
     Route: 048
     Dates: start: 20210826, end: 20210828
  3. ISAVUCONAZOLE [Interacting]
     Active Substance: ISAVUCONAZOLE
     Dosage: UNK UNK, UNKNOWN FREQ. (REDUCED DOSE)
     Route: 065
  4. AMPHOTERICIN B [Interacting]
     Active Substance: AMPHOTERICIN B
     Indication: Brain abscess
     Route: 042
     Dates: start: 20210822, end: 20210826
  5. VALGANCICLOVIR [Interacting]
     Active Substance: VALGANCICLOVIR
     Indication: Brain abscess
     Route: 048
     Dates: start: 20210825, end: 20210830
  6. AMIKACIN SULFATE [Interacting]
     Active Substance: AMIKACIN SULFATE
     Indication: Brain abscess
     Route: 042
     Dates: start: 20210820, end: 20210830
  7. CILASTATIN SODIUM\IMIPENEM [Suspect]
     Active Substance: CILASTATIN SODIUM\IMIPENEM
     Indication: Brain abscess
     Route: 042
     Dates: start: 20210820, end: 20210830

REACTIONS (9)
  - Depressed level of consciousness [Recovered/Resolved]
  - Generalised tonic-clonic seizure [Recovered/Resolved]
  - Drug interaction [Unknown]
  - Off label use [Unknown]
  - Product use in unapproved indication [Unknown]
  - Off label use [Unknown]
  - Product use in unapproved indication [Unknown]
  - Off label use [Unknown]
  - Product use in unapproved indication [Unknown]

NARRATIVE: CASE EVENT DATE: 20210821
